FAERS Safety Report 18059229 (Version 1)
Quarter: 2020Q3

REPORT INFORMATION
  Report Type: Spontaneous
  Country: US (occurrence: US)
  Receive Date: 20200723
  Receipt Date: 20200723
  Transmission Date: 20201103
  Serious: Yes (Other)
  Sender: FDA-Public Use
  Company Number: None

PATIENT
  Age: 62 Year
  Sex: Female
  Weight: 72 kg

DRUGS (1)
  1. NEOMYCIN?POLYMYXIN B SULFATES?DEXAMETHASONE OINTMENT [Suspect]
     Active Substance: DEXAMETHASONE\NEOMYCIN SULFATE\POLYMYXIN B SULFATE
     Indication: SUPERFICIAL INJURY OF EYE
     Dosage: ?          QUANTITY:3.5 OUNCE(S);?
     Route: 047
     Dates: start: 20200612, end: 20200614

REACTIONS (5)
  - Ocular hyperaemia [None]
  - Eye pain [None]
  - Eye swelling [None]
  - Condition aggravated [None]
  - Eye pruritus [None]

NARRATIVE: CASE EVENT DATE: 20200612
